FAERS Safety Report 22353303 (Version 2)
Quarter: 2023Q2

REPORT INFORMATION
  Report Type: Spontaneous
  Country: FI (occurrence: FI)
  Receive Date: 20230523
  Receipt Date: 20230614
  Transmission Date: 20230722
  Serious: Yes (Other)
  Sender: FDA-Public Use
  Company Number: FI-SANOFI-01615904

PATIENT
  Age: 62 Year
  Sex: Female

DRUGS (1)
  1. TOUJEO [Suspect]
     Active Substance: INSULIN GLARGINE
     Indication: Type 1 diabetes mellitus
     Dosage: 96 IU, QD

REACTIONS (5)
  - Blindness unilateral [Unknown]
  - Neoplasm malignant [Unknown]
  - Polyneuropathy [Unknown]
  - Swelling [Unknown]
  - Eyelid vascular disorder [Unknown]
